FAERS Safety Report 8255201-1 (Version None)
Quarter: 2012Q2

REPORT INFORMATION
  Report Type: 
  Country: None (occurrence: None)
  Receive Date: 20120403
  Receipt Date: 20120329
  Transmission Date: 20120825
  Serious: Yes (Death)
  Sender: FDA-Public Use
  Company Number: HU-ELI_LILLY_AND_COMPANY-HU201203008994

PATIENT
  Age: 38 Year
  Sex: Male
  Weight: 40 kg

DRUGS (7)
  1. FORTEO [Suspect]
     Indication: OSTEOPOROSIS
     Dosage: 20 UG, UNK
     Dates: start: 20120101
  2. AMLODIPINE [Concomitant]
  3. PENTOSAN [Concomitant]
  4. ANALGESICS [Concomitant]
  5. METHYLPREDNISOLONE [Concomitant]
  6. PANTOPRAZOLE [Concomitant]
  7. VITAMIN D [Concomitant]

REACTIONS (1)
  - DEATH [None]
